FAERS Safety Report 11549780 (Version 1)
Quarter: 2015Q3

REPORT INFORMATION
  Report Type: Spontaneous
  Country: US (occurrence: US)
  Receive Date: 20150903
  Receipt Date: 20150903
  Transmission Date: 20151125
  Serious: No
  Sender: FDA-Public Use
  Company Number: US-ELI_LILLY_AND_COMPANY-US201302005179

PATIENT
  Age: 42 Year
  Sex: Female

DRUGS (6)
  1. LISINOPRIL                              /USA/ [Concomitant]
     Active Substance: LISINOPRIL
  2. ASPIRIN                                 /USA/ [Concomitant]
  3. LANTUS [Concomitant]
     Active Substance: INSULIN GLARGINE
     Dosage: 10 U, EACH EVENING
     Dates: start: 20130211
  4. AMLODIPINE [Concomitant]
     Active Substance: AMLODIPINE BESYLATE
  5. HUMALOG MIX75/25 [Suspect]
     Active Substance: INSULIN LISPRO
     Indication: TYPE 2 DIABETES MELLITUS
     Dosage: 50 U, PRN
     Dates: end: 201210
  6. HUMALOG MIX75/25 [Suspect]
     Active Substance: INSULIN LISPRO
     Dosage: UNK
     Dates: start: 20130212

REACTIONS (4)
  - Blood glucose increased [Unknown]
  - Feeling jittery [Unknown]
  - Blood glucose decreased [Unknown]
  - Intentional product misuse [Unknown]

NARRATIVE: CASE EVENT DATE: 20130212
